FAERS Safety Report 9096168 (Version 1)
Quarter: 2013Q1

REPORT INFORMATION
  Report Type: Spontaneous
  Country: FR (occurrence: FR)
  Receive Date: 20130207
  Receipt Date: 20130207
  Transmission Date: 20140127
  Serious: Yes (Disabling)
  Sender: FDA-Public Use
  Company Number: FR-MERCK-1302FRA000753

PATIENT
  Sex: Male

DRUGS (4)
  1. CHIBRO-PROSCAR [Suspect]
     Indication: PROSTATIC ADENOMA
     Dosage: UNK
     Route: 048
  2. MECIR [Suspect]
     Indication: PROSTATIC ADENOMA
     Dosage: UNK
     Route: 048
  3. ATACAND [Suspect]
     Indication: HYPERTENSION
     Dosage: 16 MG, QD
     Route: 048
  4. MODIODAL [Suspect]
     Indication: SLEEP APNOEA SYNDROME
     Dosage: 100 MG, QD
     Route: 048

REACTIONS (1)
  - Arthralgia [Not Recovered/Not Resolved]
